FAERS Safety Report 7226051-X (Version None)
Quarter: 2011Q1

REPORT INFORMATION
  Report Type: 
  Country: None (occurrence: None)
  Receive Date: 20110113
  Receipt Date: 20110107
  Transmission Date: 20110831
  Serious: Yes (Hospitalization, Other)
  Sender: FDA-Public Use
  Company Number: IE-RB-012650-10

PATIENT
  Sex: Female

DRUGS (9)
  1. BISOPROLOL [Concomitant]
     Indication: LONG QT SYNDROME CONGENITAL
     Dosage: DOSAGE DETAILS UNKNOWN
     Route: 048
  2. MARAVIROC [Concomitant]
     Indication: HIV TEST POSITIVE
     Route: 048
  3. CO-TRIMAXOZOLE [Concomitant]
     Indication: CARDIOVASCULAR EVENT PROPHYLAXIS
     Route: 048
  4. SUBOXONE [Suspect]
     Indication: DRUG DEPENDENCE
     Route: 060
     Dates: start: 20100702
  5. ABACAVIR [Concomitant]
     Indication: HIV TEST POSITIVE
     Route: 048
     Dates: start: 20090901
  6. ANXICALM [Concomitant]
     Indication: ANXIETY
     Route: 048
     Dates: start: 20090101
  7. ZOLPIDEM [Concomitant]
     Indication: INSOMNIA
     Dosage: AT NIGHT
     Route: 048
     Dates: start: 20100414
  8. LAMIVUDINE [Concomitant]
     Indication: HIV TEST POSITIVE
     Route: 048
     Dates: start: 20090901
  9. TENOFOVIR DISOPROXIL FUMARATE [Concomitant]
     Indication: HIV TEST POSITIVE
     Route: 048

REACTIONS (5)
  - RETAINED PRODUCTS OF CONCEPTION [None]
  - DRUG EXPOSURE DURING PREGNANCY [None]
  - ABORTION SPONTANEOUS [None]
  - VAGINAL HAEMORRHAGE [None]
  - ABDOMINAL PAIN [None]
